FAERS Safety Report 18096161 (Version 12)
Quarter: 2021Q3

REPORT INFORMATION
  Report Type: Report from Study
  Country: US (occurrence: US)
  Receive Date: 20200730
  Receipt Date: 20210925
  Transmission Date: 20211014
  Serious: Yes (Hospitalization, Other)
  Sender: FDA-Public Use
  Company Number: US-SHIRE-US202024457

PATIENT
  Sex: Female
  Weight: 113 kg

DRUGS (23)
  1. HYDRALAZINE [Concomitant]
     Active Substance: HYDRALAZINE HYDROCHLORIDE
     Route: 065
  2. METOPROLOL. [Concomitant]
     Active Substance: METOPROLOL
     Route: 065
  3. LMX4 [Concomitant]
     Active Substance: LIDOCAINE
     Route: 065
  4. METOPROLOL SUCCINATE. [Concomitant]
     Active Substance: METOPROLOL SUCCINATE
     Route: 065
  5. MONTELUKAST [Concomitant]
     Active Substance: MONTELUKAST SODIUM
     Route: 065
  6. ELIQUIS [Concomitant]
     Active Substance: APIXABAN
     Route: 065
  7. SPIRONOLACTONE. [Concomitant]
     Active Substance: SPIRONOLACTONE
     Route: 065
  8. OXYGEN. [Concomitant]
     Active Substance: OXYGEN
     Route: 065
  9. MIRAPEX [Concomitant]
     Active Substance: PRAMIPEXOLE DIHYDROCHLORIDE
     Route: 065
  10. CUVITRU [Suspect]
     Active Substance: HUMAN IMMUNOGLOBULIN G
     Indication: IMMUNODEFICIENCY COMMON VARIABLE
     Dosage: 16 GRAM, 1/WEEK
     Route: 058
     Dates: start: 20200714
  11. ACETAMINOPHEN. [Concomitant]
     Active Substance: ACETAMINOPHEN
     Route: 065
  12. CARDIZEM CD [Concomitant]
     Active Substance: DILTIAZEM HYDROCHLORIDE
     Route: 065
  13. CARAFATE [Concomitant]
     Active Substance: SUCRALFATE
     Route: 065
  14. TRAMADOL HCL/ACETAMINOPHEN [Concomitant]
     Active Substance: ACETAMINOPHEN\TRAMADOL HYDROCHLORIDE
     Route: 065
  15. CARDIZEM [Concomitant]
     Active Substance: DILTIAZEM HYDROCHLORIDE
     Route: 065
  16. DIPHENHYDRAMINE. [Concomitant]
     Active Substance: DIPHENHYDRAMINE
     Dosage: UNK
     Route: 065
  17. EPINEPHRINE. [Concomitant]
     Active Substance: EPINEPHRINE
     Route: 065
  18. LYRICA [Concomitant]
     Active Substance: PREGABALIN
     Route: 065
  19. DUPIXENT [Concomitant]
     Active Substance: DUPILUMAB
     Route: 065
  20. ZOFRAN [Concomitant]
     Active Substance: ONDANSETRON HYDROCHLORIDE
     Route: 065
  21. HIZENTRA [Concomitant]
     Active Substance: HUMAN IMMUNOGLOBULIN G
     Route: 065
  22. MELOXICAM. [Concomitant]
     Active Substance: MELOXICAM
     Route: 065
  23. TIZANIDINE. [Concomitant]
     Active Substance: TIZANIDINE
     Route: 065

REACTIONS (22)
  - Upper respiratory tract infection [Unknown]
  - Feeling abnormal [Unknown]
  - Pain in extremity [Unknown]
  - Chills [Unknown]
  - Pharyngitis [Unknown]
  - Poor quality sleep [Unknown]
  - Asthma [Unknown]
  - Pneumonia [Unknown]
  - Urticaria [Unknown]
  - Heart rate decreased [Unknown]
  - Basedow^s disease [Unknown]
  - Blood pressure increased [Unknown]
  - Cough [Unknown]
  - Wheezing [Unknown]
  - Malaise [Unknown]
  - Infusion site pain [Unknown]
  - Headache [Unknown]
  - Dyspnoea [Unknown]
  - Infusion site swelling [Unknown]
  - Eye swelling [Unknown]
  - Urinary tract infection [Unknown]
  - Pulmonary oedema [Unknown]
